FAERS Safety Report 15026646 (Version 2)
Quarter: 2018Q3

REPORT INFORMATION
  Report Type: Spontaneous
  Country: HU (occurrence: HU)
  Receive Date: 20180618
  Receipt Date: 20180702
  Transmission Date: 20181010
  Serious: Yes (Other)
  Sender: FDA-Public Use
  Company Number: HU-SHIRE-HU201821808

PATIENT

DRUGS (1)
  1. KIOVIG [Suspect]
     Active Substance: HUMAN IMMUNOGLOBULIN G
     Indication: THROMBOCYTOPENIA NEONATAL
     Dosage: UNK
     Route: 042

REACTIONS (1)
  - Drug ineffective [Unknown]
